APPROVED DRUG PRODUCT: NIZATIDINE
Active Ingredient: NIZATIDINE
Strength: 300MG
Dosage Form/Route: CAPSULE;ORAL
Application: A075668 | Product #002
Applicant: ANI PHARMACEUTICALS INC
Approved: Sep 12, 2002 | RLD: No | RS: No | Type: DISCN